FAERS Safety Report 23862697 (Version 1)
Quarter: 2024Q2

REPORT INFORMATION
  Report Type: Spontaneous
  Country: US (occurrence: None)
  Receive Date: 20240515
  Receipt Date: 20240515
  Transmission Date: 20240716
  Serious: Yes (Disabling)
  Sender: FDA-Public Use
  Company Number: None

PATIENT
  Age: 60 Year
  Sex: Male
  Weight: 101.25 kg

DRUGS (1)
  1. BELSOMRA [Suspect]
     Active Substance: SUVOREXANT
     Indication: Insomnia
     Dates: end: 20240514

REACTIONS (4)
  - Mobility decreased [None]
  - Nightmare [None]
  - Emotional disorder [None]
  - Near death experience [None]

NARRATIVE: CASE EVENT DATE: 20230513
